FAERS Safety Report 15336667 (Version 1)
Quarter: 2018Q3

REPORT INFORMATION
  Report Type: Spontaneous
  Country: BR (occurrence: BR)
  Receive Date: 20180830
  Receipt Date: 20180830
  Transmission Date: 20181010
  Serious: Yes (Hospitalization)
  Sender: FDA-Public Use
  Company Number: BR-BAXTER-2018BAX022491

PATIENT
  Age: 39 Year
  Sex: Female
  Weight: 60 kg

DRUGS (18)
  1. FAULDOXO [Suspect]
     Active Substance: DOXORUBICIN HYDROCHLORIDE
     Dosage: THIRD CYCLE; WITH DOSE REDUCTION OF 15%
     Route: 042
     Dates: start: 20180713
  2. GENUXAL [Suspect]
     Active Substance: CYCLOPHOSPHAMIDE
     Indication: BREAST CANCER
     Dosage: FIRST CYCLE OF ADJUVANT CHEMOTHERAPY; DILUTED WITH IV SODIUM CHLORIDE (250 ML), INFUSED ON 40 MINUTE
     Route: 042
     Dates: start: 20180615
  3. FAULDOXO [Suspect]
     Active Substance: DOXORUBICIN HYDROCHLORIDE
     Dosage: FOURTH CYCLE WITH SAME DOSES
     Route: 042
     Dates: start: 20180803
  4. GRANULOKINE [Suspect]
     Active Substance: FILGRASTIM
     Route: 065
     Dates: start: 201807, end: 201807
  5. GENUXAL [Suspect]
     Active Substance: CYCLOPHOSPHAMIDE
     Dosage: SECOND CYCLE
     Route: 042
     Dates: start: 20180629
  6. GENUXAL [Suspect]
     Active Substance: CYCLOPHOSPHAMIDE
     Dosage: FOURTH CYCLE WITH SAME DOSES
     Route: 042
     Dates: start: 20180803
  7. CEFEPIME [Suspect]
     Active Substance: CEFEPIME HYDROCHLORIDE
     Indication: ADVERSE EVENT
     Route: 065
     Dates: start: 20180706, end: 20180709
  8. FAULDOXO [Suspect]
     Active Substance: DOXORUBICIN HYDROCHLORIDE
     Indication: BREAST CANCER
     Dosage: FIRST CYCLE OF ADJUVANT CHEMOTHERAPY; IV SODIUM CHLORIDE (50 ML) FOR DILUTION, INFUSED ON 15 MINUTES
     Route: 042
     Dates: start: 20180615
  9. GRANULOKINE [Suspect]
     Active Substance: FILGRASTIM
     Indication: ADVERSE EVENT
     Dosage: FOURTH CYCLE; FOR 7 DAYS
     Route: 058
  10. NYSTATIN. [Suspect]
     Active Substance: NYSTATIN
     Indication: ADVERSE EVENT
     Route: 048
     Dates: start: 201807
  11. NEULASTIM [Suspect]
     Active Substance: PEGFILGRASTIM
     Dosage: SECOND CYCLE
     Route: 058
     Dates: start: 20180630
  12. FAULDOXO [Suspect]
     Active Substance: DOXORUBICIN HYDROCHLORIDE
     Dosage: SECOND CYCLE
     Route: 042
     Dates: start: 20180629
  13. GRANULOKINE [Suspect]
     Active Substance: FILGRASTIM
     Indication: BREAST CANCER
     Dosage: THIRD CYCLE (D2?D6); INSTEAD OF NEULASTIM
     Route: 058
     Dates: start: 20180714, end: 20180718
  14. GRANULOKINE [Suspect]
     Active Substance: FILGRASTIM
     Route: 065
     Dates: start: 201806
  15. CEFEPIME [Suspect]
     Active Substance: CEFEPIME HYDROCHLORIDE
     Route: 065
     Dates: start: 201806
  16. GENUXAL [Suspect]
     Active Substance: CYCLOPHOSPHAMIDE
     Dosage: THIRD CYCLE; DOSE REDUCTION OF 15%
     Route: 042
     Dates: start: 20180713
  17. NEULASTIM [Suspect]
     Active Substance: PEGFILGRASTIM
     Indication: BREAST CANCER
     Dosage: FIRST CYCLE
     Route: 058
     Dates: start: 20180616
  18. SODIUM CHLORIDE. [Suspect]
     Active Substance: SODIUM CHLORIDE
     Indication: MEDICATION DILUTION
     Route: 042
     Dates: start: 20180615

REACTIONS (9)
  - Aphthous ulcer [Recovered/Resolved]
  - Febrile neutropenia [Recovered/Resolved]
  - Mucosal inflammation [Recovered/Resolved]
  - Leukocytosis [Recovered/Resolved]
  - Mucosal inflammation [Recovered/Resolved]
  - Mucosal inflammation [Recovered/Resolved]
  - Administration site phlebitis [Recovered/Resolved]
  - Pyrexia [Recovered/Resolved]
  - Pyrexia [Recovered/Resolved]

NARRATIVE: CASE EVENT DATE: 20180622
